FAERS Safety Report 6319553-1 (Version None)
Quarter: 2009Q3

REPORT INFORMATION
  Report Type: 
  Country: None (occurrence: None)
  Receive Date: 20090822
  Receipt Date: 20080916
  Transmission Date: 20100115
  Serious: No
  Sender: FDA-Public Use
  Company Number: US-ABBOTT-08P-163-0476534-00

PATIENT
  Sex: Female

DRUGS (6)
  1. NIASPAN [Suspect]
     Indication: DRUG USE FOR UNKNOWN INDICATION
     Route: 048
     Dates: start: 20080301
  2. NIASPAN [Suspect]
     Route: 048
     Dates: start: 20080701, end: 20080701
  3. NIASPAN [Suspect]
     Route: 048
     Dates: start: 20080201, end: 20080301
  4. SIMCOR [Interacting]
     Indication: DRUG USE FOR UNKNOWN INDICATION
     Dosage: 1000/20MG DAILY
     Route: 048
     Dates: start: 20080601
  5. FENOFIBRATE [Concomitant]
     Indication: DRUG USE FOR UNKNOWN INDICATION
     Route: 048
  6. ASPIRIN [Concomitant]
     Indication: DRUG USE FOR UNKNOWN INDICATION
     Route: 048

REACTIONS (3)
  - FLUSHING [None]
  - MALAISE [None]
  - NAUSEA [None]
